FAERS Safety Report 6155858-5 (Version None)
Quarter: 2009Q2

REPORT INFORMATION
  Report Type: 
  Country: None (occurrence: None)
  Receive Date: 20090413
  Receipt Date: 20090413
  Transmission Date: 20091009
  Serious: Yes (Hospitalization)
  Sender: FDA-Public Use
  Company Number: None

PATIENT
  Sex: Female
  Weight: 73.4827 kg

DRUGS (3)
  1. SORAFENIB 600MG BID PO [Suspect]
     Indication: NON-SMALL CELL LUNG CANCER METASTATIC
     Dosage: 600MG BID P.O.
     Route: 048
     Dates: start: 20090127, end: 20090203
  2. SORAFENIB 600MG BID PO [Suspect]
     Indication: NON-SMALL CELL LUNG CANCER METASTATIC
     Dosage: 600MG BID P.O.
     Route: 048
     Dates: start: 20090212, end: 20090223
  3. SORAFENIB 600MG BID PO [Suspect]
     Indication: NON-SMALL CELL LUNG CANCER METASTATIC
     Dosage: 600MG BID P.O.
     Route: 048
     Dates: start: 20090224, end: 20090303

REACTIONS (9)
  - ABDOMINAL PAIN [None]
  - ANORECTAL DISORDER [None]
  - CONSTIPATION [None]
  - NAUSEA [None]
  - PAIN IN EXTREMITY [None]
  - RASH [None]
  - SECRETION DISCHARGE [None]
  - SKIN DISORDER [None]
  - VOMITING [None]
